FAERS Safety Report 6665436-7 (Version None)
Quarter: 2010Q2

REPORT INFORMATION
  Report Type: 
  Country: None (occurrence: None)
  Receive Date: 20100402
  Receipt Date: 20100324
  Transmission Date: 20101027
  Serious: Yes (Hospitalization)
  Sender: FDA-Public Use
  Company Number: ES-PFIZER INC-2010037434

PATIENT
  Age: 64 Year
  Sex: Female

DRUGS (6)
  1. REVATIO [Suspect]
     Indication: SCLERODERMA
     Dosage: 20 MG TABLETS, 40 MG/DAY
     Route: 048
     Dates: start: 20080101, end: 20090301
  2. TRACLEER [Suspect]
     Indication: SCLERODERMA
     Dosage: 62.5 MG TABLETS, 250 MG/DAY
     Route: 048
     Dates: start: 20070101, end: 20090805
  3. PLAVIX [Suspect]
     Indication: PULMONARY HYPERTENSION
     Dosage: 75 MG, 1X/DAY
     Route: 048
  4. PREDNISONE [Concomitant]
     Indication: SCLERODERMA
     Dosage: 5 MG/DAY
     Route: 048
  5. ADALAT [Concomitant]
     Indication: PULMONARY HYPERTENSION
     Dosage: UNK
     Route: 048
  6. INACID [Concomitant]
     Indication: PULMONARY HYPERTENSION
     Dosage: 25 MG CAPSULES, 50 MG/DAY
     Route: 048

REACTIONS (1)
  - ANAEMIA [None]
